FAERS Safety Report 19207264 (Version 3)
Quarter: 2021Q3

REPORT INFORMATION
  Report Type: Spontaneous
  Country: US (occurrence: US)
  Receive Date: 20210503
  Receipt Date: 20210810
  Transmission Date: 20211014
  Serious: No
  Sender: FDA-Public Use
  Company Number: US-PFIZER INC-2021262452

PATIENT
  Age: 50 Year
  Sex: Female
  Weight: 108.84 kg

DRUGS (10)
  1. CYCLOBENZAPRINE HCL [Concomitant]
     Active Substance: CYCLOBENZAPRINE HYDROCHLORIDE
     Dosage: 100 % (100 % POWDER)
  2. TRAMADOL HCL [Concomitant]
     Active Substance: TRAMADOL HYDROCHLORIDE
     Dosage: 100 % POWDER
  3. IBRANCE [Suspect]
     Active Substance: PALBOCICLIB
     Indication: ILLNESS
     Dosage: 100 MG CYCLIC (DAILY FOR 21 DAYS)
     Route: 048
     Dates: start: 202102
  4. ANASTROZOLE. [Concomitant]
     Active Substance: ANASTROZOLE
     Dosage: 100 % (100 % POWDER)
  5. CLONAZEPAM. [Concomitant]
     Active Substance: CLONAZEPAM
     Dosage: 0.125 MG
  6. GABAPENTIN. [Concomitant]
     Active Substance: GABAPENTIN
     Dosage: 100 % (100% POWDER)
  7. DURAGESIC MAT [Concomitant]
     Active Substance: FENTANYL
     Dosage: 25 MG
  8. DURAGESIC MAT [Concomitant]
     Active Substance: FENTANYL
     Dosage: 50 MG
  9. IBRANCE [Suspect]
     Active Substance: PALBOCICLIB
     Indication: BREAST CANCER FEMALE
     Dosage: 125 MG, CYCLIC (ONCE DAILY FOR 3 WEEKS ON, 1 WEEK OFF EVERY 28 DAYS)
     Route: 048
     Dates: start: 20210217
  10. COVID?19 VACCINE [Concomitant]
     Dosage: UNK

REACTIONS (8)
  - Fatigue [Not Recovered/Not Resolved]
  - Diarrhoea [Unknown]
  - Feeling abnormal [Unknown]
  - White blood cell count decreased [Recovered/Resolved]
  - Oral discomfort [Unknown]
  - Nausea [Recovering/Resolving]
  - Crying [Unknown]
  - Anxiety [Unknown]
